FAERS Safety Report 15936902 (Version 3)
Quarter: 2019Q1

REPORT INFORMATION
  Report Type: Spontaneous
  Country: JP (occurrence: JP)
  Receive Date: 20190208
  Receipt Date: 20190326
  Transmission Date: 20190417
  Serious: Yes (Other)
  Sender: FDA-Public Use
  Company Number: JP-TEVA-2019-JP-1010298

PATIENT
  Age: 70 Year
  Sex: Female

DRUGS (5)
  1. COMTAN [Concomitant]
     Active Substance: ENTACAPONE
  2. ROTIGOTINE [Concomitant]
     Active Substance: ROTIGOTINE
  3. PRAMIPEXOLE HYDROCHLORIDE MONOHYDRATE [Concomitant]
     Active Substance: PRAMIPEXOLE
  4. AZILECT [Suspect]
     Active Substance: RASAGILINE MESYLATE
     Indication: PARKINSON^S DISEASE
     Route: 048
  5. LEVODOPA [Concomitant]
     Active Substance: LEVODOPA

REACTIONS (2)
  - Spinal compression fracture [Recovering/Resolving]
  - Fall [Unknown]
